FAERS Safety Report 17516879 (Version 1)
Quarter: 2020Q1

REPORT INFORMATION
  Report Type: Spontaneous
  Country: FR (occurrence: FR)
  Receive Date: 20200309
  Receipt Date: 20200309
  Transmission Date: 20200409
  Serious: Yes (Hospitalization)
  Sender: FDA-Public Use
  Company Number: FR-PFIZER INC-2020097180

PATIENT
  Age: 91 Year
  Sex: Female

DRUGS (7)
  1. BOSULIF [Suspect]
     Active Substance: BOSUTINIB MONOHYDRATE
     Indication: CHRONIC MYELOID LEUKAEMIA
     Dosage: 200 MG, 1X/DAY
     Route: 048
     Dates: start: 201505, end: 20200103
  2. BISOPROLOL [Concomitant]
     Active Substance: BISOPROLOL
     Dosage: 5 MG, 1X/DAY
  3. FUROSEMIDE. [Concomitant]
     Active Substance: FUROSEMIDE
     Dosage: 125 MG, 1X/DAY
     Route: 048
  4. LOXEN [NICARDIPINE HYDROCHLORIDE] [Concomitant]
     Active Substance: NICARDIPINE HYDROCHLORIDE
     Dosage: 100 MG, 1X/DAY
     Route: 048
  5. ADENURIC [Concomitant]
     Active Substance: FEBUXOSTAT
     Dosage: 80 MG, 1X/DAY
     Route: 048
  6. SEROPLEX [Concomitant]
     Active Substance: ESCITALOPRAM OXALATE
     Dosage: 5 MG, 1X/DAY
     Route: 048
  7. SERESTA [Concomitant]
     Active Substance: OXAZEPAM
     Dosage: 10 MG, 1X/DAY
     Route: 048

REACTIONS (3)
  - Pleural effusion [Recovered/Resolved]
  - Acute kidney injury [Recovered/Resolved]
  - Cardiac failure [Recovered/Resolved]

NARRATIVE: CASE EVENT DATE: 20191211
